FAERS Safety Report 5033199-7 (Version None)
Quarter: 2006Q2

REPORT INFORMATION
  Report Type: 
  Country: None (occurrence: None)
  Receive Date: 20060620
  Receipt Date: 20060607
  Transmission Date: 20061013
  Serious: Yes (Death)
  Sender: FDA-Public Use
  Company Number: 163-21880-06050743

PATIENT
  Age: 52 Year
  Sex: Female

DRUGS (3)
  1. REVLIMID [Suspect]
     Indication: AMYLOIDOSIS
     Dosage: 25 MG, DAILY, ORAL
     Route: 048
     Dates: start: 20060501, end: 20060101
  2. REVLIMID [Suspect]
  3. REVLIMID [Suspect]

REACTIONS (2)
  - AMYLOIDOSIS [None]
  - DISEASE PROGRESSION [None]
